FAERS Safety Report 9005641 (Version 2)
Quarter: 2013Q1

REPORT INFORMATION
  Report Type: Report from Study
  Country: JP (occurrence: JP)
  Receive Date: 20130109
  Receipt Date: 20130201
  Transmission Date: 20140127
  Serious: Yes (Death, Life-Threatening, Hospitalization, Other)
  Sender: FDA-Public Use
  Company Number: JP-AMGEN-JPNCT2012084364

PATIENT
  Age: 78 Year
  Sex: Male
  Weight: 54 kg

DRUGS (28)
  1. DARBEPOETIN ALFA [Suspect]
     Indication: NEPHROGENIC ANAEMIA
     Dosage: 60 MUG, UNK
     Route: 058
     Dates: start: 20111107, end: 20111107
  2. DARBEPOETIN ALFA [Suspect]
     Dosage: 120 MUG, UNK
     Route: 058
     Dates: start: 20120123, end: 20120123
  3. DARBEPOETIN ALFA [Suspect]
     Dosage: 120 MUG, UNK
     Route: 058
     Dates: start: 20120201, end: 20120201
  4. DARBEPOETIN ALFA [Suspect]
     Dosage: 120 MUG, UNK
     Route: 058
     Dates: start: 20120220, end: 20120220
  5. DARBEPOETIN ALFA [Suspect]
     Dosage: 120 MUG, Q2WK
     Route: 058
     Dates: start: 20120507, end: 20120523
  6. DARBEPOETIN ALFA [Suspect]
     Dosage: 120 MUG, UNK
     Route: 058
     Dates: start: 20120618, end: 20120618
  7. DARBEPOETIN ALFA [Suspect]
     Dosage: 120 MUG, UNK
     Route: 058
     Dates: start: 20120723, end: 20120723
  8. DARBEPOETIN ALFA [Suspect]
     Dosage: 120 MUG, UNK
     Route: 058
     Dates: start: 20120827, end: 20120827
  9. DARBEPOETIN ALFA [Suspect]
     Dosage: 60 MUG, QWK
     Route: 058
     Dates: start: 20120926, end: 20121004
  10. DARBEPOETIN ALFA [Suspect]
     Dosage: 120 MUG, UNK
     Route: 058
     Dates: start: 20121023, end: 20121023
  11. AMLODIN [Concomitant]
     Dosage: UNK
     Route: 048
  12. ARGAMATE [Concomitant]
     Dosage: UNK
     Route: 048
  13. HERBAL EXTRACT NOS [Concomitant]
     Dosage: UNK
     Route: 048
  14. MUCOSOLVAN [Concomitant]
     Dosage: UNK
     Route: 048
  15. TAKEPRON [Concomitant]
     Dosage: UNK
     Route: 048
  16. LYRICA [Concomitant]
     Dosage: UNK
     Route: 048
  17. ALLELOCK [Concomitant]
     Dosage: UNK
  18. BIOFERMIN R [Concomitant]
     Dosage: UNK
     Route: 048
  19. BAYASPIRIN [Concomitant]
     Dosage: UNK
     Route: 048
  20. SPIRIVA [Concomitant]
     Dosage: UNK
     Route: 048
  21. SENNOSIDE [Concomitant]
     Dosage: UNK
     Route: 048
  22. FLUTICASONE PROPIONATE [Concomitant]
     Dosage: UNK
     Route: 049
  23. HIRUDOID [Concomitant]
     Dosage: UNK
     Route: 061
  24. MYSER [Concomitant]
     Dosage: UNK
     Route: 061
  25. MAGMITT [Concomitant]
     Dosage: UNK
     Route: 048
  26. KAYEXALATE [Concomitant]
     Dosage: UNK
     Route: 048
  27. TALION [Concomitant]
     Dosage: UNK
     Route: 048
  28. ATARAX-P [Concomitant]
     Route: 065

REACTIONS (9)
  - Lung carcinoma cell type unspecified recurrent [Fatal]
  - Pyelonephritis [Fatal]
  - Pneumonia [Not Recovered/Not Resolved]
  - Haemoptysis [Not Recovered/Not Resolved]
  - Pneumonia bacterial [Recovering/Resolving]
  - Delirium [Not Recovered/Not Resolved]
  - Fall [Recovering/Resolving]
  - Nocturia [Unknown]
  - Hyperuricaemia [Recovering/Resolving]
